FAERS Safety Report 9122997 (Version 2)
Quarter: 2013Q1

REPORT INFORMATION
  Report Type: Spontaneous
  Country: US (occurrence: US)
  Receive Date: 20130115
  Receipt Date: 20130128
  Transmission Date: 20140127
  Serious: Yes (Hospitalization)
  Sender: FDA-Public Use
  Company Number: US-COVIDIEN/TYCO HEALTHCARE/MALLINCKRODT-T201300015

PATIENT
  Sex: Female

DRUGS (8)
  1. HYDROMORPHONE [Suspect]
     Indication: PAIN
     Dosage: 4 MG, Q 4-6 HRS, PRN
     Route: 048
  2. CHLORTHALIDONE [Concomitant]
     Indication: FLUID RETENTION
     Dosage: UNK
  3. BUMEX [Concomitant]
     Indication: CARDIAC FAILURE CONGESTIVE
     Dosage: UNK
  4. INSPRA                             /01613601/ [Concomitant]
     Indication: CARDIAC FAILURE CONGESTIVE
     Dosage: UNK
  5. SPIRONOLACTONE [Concomitant]
     Indication: CARDIAC FAILURE CONGESTIVE
     Dosage: UNK
  6. COUMADIN                           /00014802/ [Concomitant]
     Indication: ANTICOAGULANT THERAPY
     Dosage: UNK
  7. MILK OF MAGNESIA [Concomitant]
     Indication: CONSTIPATION
     Dosage: UNK
  8. MIRALAX                            /00754501/ [Concomitant]
     Indication: CONSTIPATION
     Dosage: UNK

REACTIONS (1)
  - Cellulitis [Recovered/Resolved]
